FAERS Safety Report 4906119-0 (Version None)
Quarter: 2006Q1

REPORT INFORMATION
  Report Type: 
  Country: None (occurrence: None)
  Receive Date: 20060209
  Receipt Date: 20060203
  Transmission Date: 20060701
  Serious: Yes (Hospitalization)
  Sender: FDA-Public Use
  Company Number: 2006UW01880

PATIENT
  Sex: Male
  Weight: 75 kg

DRUGS (2)
  1. IRESSA [Suspect]
     Indication: OESOPHAGEAL CARCINOMA
     Route: 048
     Dates: start: 20050315, end: 20060101
  2. OXALIPLATIN [Suspect]
     Indication: OESOPHAGEAL CARCINOMA
     Dosage: IVX 6 DOSES
     Dates: start: 20050315, end: 20050705

REACTIONS (1)
  - CEREBROVASCULAR ACCIDENT [None]
